FAERS Safety Report 15651165 (Version 1)
Quarter: 2018Q4

REPORT INFORMATION
  Report Type: Spontaneous
  Country: US (occurrence: US)
  Receive Date: 20181123
  Receipt Date: 20181123
  Transmission Date: 20190205
  Serious: No
  Sender: FDA-Public Use
  Company Number: US-009507513-1809USA004189

PATIENT
  Sex: Female
  Weight: 62.99 kg

DRUGS (2)
  1. BETAMETHASONE DIPROPIONATE (+) SALICYLIC ACID [Suspect]
     Active Substance: BETAMETHASONE DIPROPIONATE\SALICYLIC ACID
     Indication: PRODUCT USE IN UNAPPROVED INDICATION
     Dosage: UNK
     Route: 061
  2. BETAMETHASONE DIPROPIONATE (+) SALICYLIC ACID [Suspect]
     Active Substance: BETAMETHASONE DIPROPIONATE\SALICYLIC ACID
     Dosage: UNK

REACTIONS (2)
  - Device malfunction [Unknown]
  - Device ineffective [Not Recovered/Not Resolved]
